FAERS Safety Report 5585449-6 (Version None)
Quarter: 2008Q1

REPORT INFORMATION
  Report Type: 
  Country: None (occurrence: None)
  Receive Date: 20080104
  Receipt Date: 20080104
  Transmission Date: 20080703
  Serious: Yes (Hospitalization)
  Sender: FDA-Public Use
  Company Number: None

PATIENT
  Sex: Male

DRUGS (1)
  1. TPA TISSUE PLASMINOGEN ACTIATOR [Suspect]
     Indication: CEREBROVASCULAR ACCIDENT
     Dates: start: 20070629, end: 20070630

REACTIONS (1)
  - SUBARACHNOID HAEMORRHAGE [None]
